FAERS Safety Report 16904657 (Version 2)
Quarter: 2019Q4

REPORT INFORMATION
  Report Type: Spontaneous
  Country: BG (occurrence: BG)
  Receive Date: 20191010
  Receipt Date: 20191121
  Transmission Date: 20200122
  Serious: Yes (Hospitalization, Other)
  Sender: FDA-Public Use
  Company Number: BG-JNJFOC-20191006156

PATIENT
  Age: 69 Year
  Sex: Female

DRUGS (11)
  1. CLOPIDOGREL [Concomitant]
     Active Substance: CLOPIDOGREL BISULFATE
     Dosage: 75 MG, QD
  2. RIVAROXABAN [Suspect]
     Active Substance: RIVAROXABAN
     Dosage: 15 MG, QD
     Route: 048
  3. BISOPROLOL [Concomitant]
     Active Substance: BISOPROLOL
     Dosage: 5 MG, QD
     Dates: start: 201907
  4. RAMIPRIL. [Concomitant]
     Active Substance: RAMIPRIL
     Indication: ATRIAL FIBRILLATION
     Dosage: 5 MG, QD
     Dates: start: 201901
  5. ASPIRIN [ACETYLSALICYLIC ACID] [Concomitant]
     Active Substance: ASPIRIN
     Dosage: 100 MG, QD
  6. ROSUVASTATIN. [Concomitant]
     Active Substance: ROSUVASTATIN
     Dosage: 10 MG, QD
  7. ATORVASTATIN [Concomitant]
     Active Substance: ATORVASTATIN
     Dosage: 20 MG, QD
  8. BISOPROLOL [Concomitant]
     Active Substance: BISOPROLOL
     Indication: ATRIAL FIBRILLATION
     Dosage: 10 MG, QD
     Dates: start: 201901
  9. RIVAROXABAN [Suspect]
     Active Substance: RIVAROXABAN
     Indication: ATRIAL FIBRILLATION
     Dosage: 20 MG, QD
     Route: 048
     Dates: start: 201901
  10. FRAXIPARIN [Concomitant]
     Active Substance: NADROPARIN CALCIUM
     Dosage: 2X 0.6 ML/ S.C
  11. L-THYROXIN 1A PHARMA [Concomitant]
     Dosage: 25  G, QD

REACTIONS (9)
  - Coronary artery stenosis [Recovered/Resolved]
  - Heart rate decreased [Unknown]
  - Atrial fibrillation [Unknown]
  - Hypotonia [Unknown]
  - Chest discomfort [Unknown]
  - Sinus bradycardia [Recovered/Resolved]
  - Chest pain [Unknown]
  - Mucosal discolouration [Unknown]
  - Dyspnoea [Unknown]

NARRATIVE: CASE EVENT DATE: 201907
